FAERS Safety Report 4848768-4 (Version None)
Quarter: 2005Q4

REPORT INFORMATION
  Report Type: 
  Country: None (occurrence: None)
  Receive Date: 20051206
  Receipt Date: 20051116
  Transmission Date: 20060501
  Serious: Yes (Hospitalization)
  Sender: FDA-Public Use
  Company Number: GR200511001871

PATIENT
  Age: 45 Year
  Sex: Female

DRUGS (3)
  1. FORTEO [Suspect]
     Indication: OSTEOPOROSIS
  2. FORTEO (250MCG/ML (FORTEO PEN 250MCG/ML (3ML) [Concomitant]
  3. PEN, DISPOSABLE [Concomitant]

REACTIONS (1)
  - PULMONARY OEDEMA [None]
